FAERS Safety Report 22525423 (Version 2)
Quarter: 2023Q2

REPORT INFORMATION
  Report Type: Report from Study
  Country: US (occurrence: US)
  Receive Date: 20230606
  Receipt Date: 20230614
  Transmission Date: 20230721
  Serious: Yes (Hospitalization, Other)
  Sender: FDA-Public Use
  Company Number: US-SUN PHARMACEUTICAL INDUSTRIES LTD-2023R1-388610

PATIENT
  Age: 39 Year
  Sex: Female
  Weight: 156.92 kg

DRUGS (1)
  1. TILDRAKIZUMAB [Suspect]
     Active Substance: TILDRAKIZUMAB
     Indication: Psoriasis
     Dosage: 100 MILLIGRAM, Q12WKS
     Route: 058
     Dates: start: 20220713, end: 20221130

REACTIONS (4)
  - Cardiac failure congestive [Not Recovered/Not Resolved]
  - Urinary tract infection [Unknown]
  - Bacteraemia [Unknown]
  - Ejection fraction decreased [Unknown]

NARRATIVE: CASE EVENT DATE: 20221229
